FAERS Safety Report 6057274-3 (Version None)
Quarter: 2009Q1

REPORT INFORMATION
  Report Type: 
  Country: None (occurrence: None)
  Receive Date: 20090129
  Receipt Date: 20080721
  Transmission Date: 20090719
  Serious: No
  Sender: FDA-Public Use
  Company Number: A0738929A

PATIENT
  Age: 11 Year
  Sex: Female

DRUGS (1)
  1. BUPROPION HCL [Suspect]
     Route: 065

REACTIONS (1)
  - DRUG INEFFECTIVE [None]
